FAERS Safety Report 12155064 (Version 1)
Quarter: 2016Q1

REPORT INFORMATION
  Report Type: Spontaneous
  Country: US (occurrence: None)
  Receive Date: 20160304
  Receipt Date: 20160304
  Transmission Date: 20160526
  Serious: Yes (Hospitalization)
  Sender: FDA-Public Use
  Company Number: None

PATIENT
  Age: 82 Year
  Sex: Male

DRUGS (1)
  1. TACROLIMUS 0.5MG SANDOZ [Suspect]
     Active Substance: TACROLIMUS
     Indication: LIVER TRANSPLANT
     Dosage: 1 CAPSULE Q12H PO
     Route: 048
     Dates: start: 20150611

REACTIONS (2)
  - Pneumonia [None]
  - Surgery [None]
